FAERS Safety Report 20731350 (Version 1)
Quarter: 2022Q2

REPORT INFORMATION
  Report Type: Spontaneous
  Country: US (occurrence: None)
  Receive Date: 20220420
  Receipt Date: 20220420
  Transmission Date: 20220720
  Serious: Yes (Hospitalization)
  Sender: FDA-Public Use
  Company Number: None

PATIENT
  Age: 21 Year
  Sex: Male
  Weight: 80 kg

DRUGS (2)
  1. SEVOFLURANE [Suspect]
     Active Substance: SEVOFLURANE
     Indication: Sedative therapy
  2. SEVOFLURANE [Concomitant]
     Active Substance: SEVOFLURANE
     Dates: start: 20220301, end: 20220301

REACTIONS (6)
  - End-tidal CO2 increased [None]
  - Body temperature increased [None]
  - Muscle rigidity [None]
  - Heart rate increased [None]
  - Trismus [None]
  - Vein disorder [None]

NARRATIVE: CASE EVENT DATE: 20220301
